FAERS Safety Report 13123644 (Version 2)
Quarter: 2017Q1

REPORT INFORMATION
  Report Type: Spontaneous
  Country: DK (occurrence: DK)
  Receive Date: 20170117
  Receipt Date: 20170124
  Transmission Date: 20170428
  Serious: Yes (Other)
  Sender: FDA-Public Use
  Company Number: PHHY2016DK176371

PATIENT
  Sex: Male

DRUGS (3)
  1. QUETIAPINE. [Suspect]
     Active Substance: QUETIAPINE
     Indication: INSOMNIA
     Dosage: 25 MG, QN
     Route: 065
     Dates: start: 2015
  2. SERTRALINE [Suspect]
     Active Substance: SERTRALINE HYDROCHLORIDE
     Indication: DEPRESSION
     Dosage: 50 MG, UNK
     Route: 065
     Dates: start: 2014
  3. SERTRALINE [Suspect]
     Active Substance: SERTRALINE HYDROCHLORIDE
     Dosage: 100 MG, UNK
     Route: 065
     Dates: start: 201503

REACTIONS (6)
  - Cotard^s syndrome [Unknown]
  - Facial bones fracture [Unknown]
  - Memory impairment [Not Recovered/Not Resolved]
  - Apathy [Unknown]
  - Derealisation [Unknown]
  - Fall [Unknown]

NARRATIVE: CASE EVENT DATE: 2015
